FAERS Safety Report 7073625-5 (Version None)
Quarter: 2010Q4

REPORT INFORMATION
  Report Type: 
  Country: None (occurrence: None)
  Receive Date: 20101029
  Receipt Date: 20100720
  Transmission Date: 20110411
  Serious: No
  Sender: FDA-Public Use
  Company Number: A0871425A

PATIENT
  Age: 63 Year
  Sex: Male

DRUGS (10)
  1. ADVAIR DISKUS 100/50 [Suspect]
     Indication: ASTHMA
     Dosage: 1PUFF TWICE PER DAY
     Route: 055
     Dates: start: 20100601
  2. SIMVASTATIN [Concomitant]
  3. COMBIVENT [Concomitant]
  4. CORTAID [Concomitant]
  5. MULTI-VITAMIN [Concomitant]
  6. LOVAZA [Concomitant]
  7. CO-ENZYMES(DEPRESSION) [Concomitant]
  8. VITAMIN D [Concomitant]
  9. CALCIUM [Concomitant]
  10. MAGNESIUM [Concomitant]

REACTIONS (1)
  - DRUG INEFFECTIVE [None]
